FAERS Safety Report 7422776-1 (Version None)
Quarter: 2011Q2

REPORT INFORMATION
  Report Type: 
  Country: None (occurrence: None)
  Receive Date: 20110411
  Receipt Date: 20110331
  Transmission Date: 20111010
  Serious: Yes (Death, Life-Threatening, Other)
  Sender: FDA-Public Use
  Company Number: 2007-01904

PATIENT
  Age: 65 Year
  Sex: Male
  Weight: 59 kg

DRUGS (12)
  1. AMARYL [Concomitant]
  2. MAGNESIUM OXIDE (MAGNESIUM OXIDE) [Concomitant]
  3. VELCADE [Suspect]
     Indication: MULTIPLE MYELOMA
     Dosage: 1.5 MG, CYCLIC, INTRAVENOUS; 1.1 MG, CYCLIC, INTRAVENOUS
     Route: 042
     Dates: start: 20070320, end: 20070720
  4. VELCADE [Suspect]
     Indication: MULTIPLE MYELOMA
     Dosage: 1.5 MG, CYCLIC, INTRAVENOUS; 1.1 MG, CYCLIC, INTRAVENOUS
     Route: 042
     Dates: start: 20080701, end: 20080905
  5. VELCADE [Suspect]
     Indication: MULTIPLE MYELOMA
     Dosage: 1.5 MG, CYCLIC, INTRAVENOUS; 1.1 MG, CYCLIC, INTRAVENOUS
     Route: 042
     Dates: start: 20070814, end: 20071113
  6. DEXAMETHASONE [Suspect]
     Indication: MULTIPLE MYELOMA
     Dosage: 20 MG, CYCLIC, INTRAVENOUS
     Route: 042
     Dates: start: 20070320, end: 20080404
  7. BASEN (VOGLIBOSE) [Concomitant]
  8. TAKEPRON (LANSOPRAZOLE) [Concomitant]
  9. PRIMPERAN TAB [Concomitant]
  10. CIPROXAN (CIPROFLOXACIN HYDROCHLORIDE) TABLET [Concomitant]
  11. ZOVIRAX [Concomitant]
  12. COTRIM [Concomitant]

REACTIONS (14)
  - HYPOAESTHESIA [None]
  - ASPARTATE AMINOTRANSFERASE INCREASED [None]
  - C-REACTIVE PROTEIN INCREASED [None]
  - NAUSEA [None]
  - MULTIPLE MYELOMA [None]
  - PLATELET COUNT DECREASED [None]
  - PYREXIA [None]
  - BLOOD UREA INCREASED [None]
  - HERPES ZOSTER [None]
  - URINARY TRACT INFECTION [None]
  - HEPATIC FUNCTION ABNORMAL [None]
  - ALANINE AMINOTRANSFERASE INCREASED [None]
  - NEOPLASM PROGRESSION [None]
  - BLOOD LACTATE DEHYDROGENASE INCREASED [None]
